FAERS Safety Report 14240929 (Version 4)
Quarter: 2018Q1

REPORT INFORMATION
  Report Type: Report from Study
  Country: US (occurrence: US)
  Receive Date: 20171130
  Receipt Date: 20180214
  Transmission Date: 20180508
  Serious: Yes (Death, Hospitalization, Other)
  Sender: FDA-Public Use
  Company Number: US-ACTELION-A-NJ2017-159697

PATIENT
  Age: 61 Year
  Sex: Female
  Weight: 100.23 kg

DRUGS (5)
  1. VELETRI [Suspect]
     Active Substance: EPOPROSTENOL
     Indication: PULMONARY HYPERTENSION
     Dosage: 16 NG/KG, PER MIN
     Route: 042
     Dates: start: 20171017
  2. VELETRI [Suspect]
     Active Substance: EPOPROSTENOL
     Dosage: 10 NG/KG, PER MIN
     Route: 042
  3. WARFARIN [Concomitant]
     Active Substance: WARFARIN
  4. SILDENAFIL. [Concomitant]
     Active Substance: SILDENAFIL
  5. LETAIRIS [Concomitant]
     Active Substance: AMBRISENTAN

REACTIONS (28)
  - Palpitations [Recovered/Resolved]
  - Feeling cold [Unknown]
  - Swelling [Unknown]
  - Plastic surgery [Unknown]
  - Fatigue [Not Recovered/Not Resolved]
  - Nausea [Unknown]
  - Hypotension [Recovering/Resolving]
  - Abdominal discomfort [Recovering/Resolving]
  - Peripheral swelling [Unknown]
  - Dizziness [Unknown]
  - Stress [Unknown]
  - Flushing [Unknown]
  - Pain in extremity [Unknown]
  - Hypoaesthesia [Recovering/Resolving]
  - Pain in jaw [Recovering/Resolving]
  - Contusion [Unknown]
  - Catheter site erythema [Unknown]
  - Death [Fatal]
  - Blood pressure decreased [Recovering/Resolving]
  - Device alarm issue [Recovered/Resolved]
  - Heart rate increased [Recovering/Resolving]
  - Asthenia [Recovering/Resolving]
  - Catheter site pain [Unknown]
  - Intra-abdominal haematoma [Unknown]
  - Headache [Unknown]
  - Dyspnoea exertional [Not Recovered/Not Resolved]
  - Anxiety [Unknown]
  - Wound [Unknown]

NARRATIVE: CASE EVENT DATE: 20171017
